FAERS Safety Report 18628018 (Version 1)
Quarter: 2020Q4

REPORT INFORMATION
  Report Type: Spontaneous
  Country: FR (occurrence: FR)
  Receive Date: 20201217
  Receipt Date: 20201217
  Transmission Date: 20210114
  Serious: Yes (Hospitalization)
  Sender: FDA-Public Use
  Company Number: FR-009507513-2012FRA006075

PATIENT
  Age: 53 Year
  Sex: Female

DRUGS (3)
  1. EXVIERA [Concomitant]
     Active Substance: DASABUVIR
  2. VIEKIRAX [Concomitant]
     Active Substance: OMBITASVIR\PARITAPREVIR\RITONAVIR
  3. RIBAVIRIN. [Suspect]
     Active Substance: RIBAVIRIN
     Dosage: UNK
     Dates: start: 20160310, end: 20160601

REACTIONS (1)
  - Renal transplant [Not Recovered/Not Resolved]

NARRATIVE: CASE EVENT DATE: 20170105
